FAERS Safety Report 9844890 (Version 1)
Quarter: 2014Q1

REPORT INFORMATION
  Report Type: Spontaneous
  Country: JP (occurrence: None)
  Receive Date: 20140122
  Receipt Date: 20140122
  Transmission Date: 20141002
  Serious: Yes (Other)
  Sender: FDA-Public Use
  Company Number: FK201400184

PATIENT
  Age: 70 Year
  Sex: 0

DRUGS (6)
  1. LEUCOVORIN CALCIUM (LEUCOVORIN CALCIUM) [Suspect]
     Indication: HEPATIC NEOPLASM
     Route: 042
  2. OXALIPLATIN (OXALIPLATIN) (OXALIPLATIN) [Suspect]
     Indication: HEPATIC NEOPLASM
     Route: 042
  3. IRINOTECAN (IRINOTECAN) (IRINOTECAN) [Suspect]
     Indication: HEPATIC NEOPLASM
     Route: 042
  4. 5-FLUOROURACIL (FLUOROURACIL) [Concomitant]
  5. BEVACIZUMAB (BEVACIZUMAB) [Concomitant]
  6. TS-1 (GIMERACIL W/OTERACIL POTASSIUM/TEGAFUR) [Concomitant]

REACTIONS (1)
  - Pulmonary oedema [None]
